FAERS Safety Report 4558567-9 (Version None)
Quarter: 2005Q1

REPORT INFORMATION
  Report Type: 
  Country: None (occurrence: None)
  Receive Date: 20050121
  Receipt Date: 20050114
  Transmission Date: 20050727
  Serious: Yes (Death)
  Sender: FDA-Public Use
  Company Number: US-BRISTOL-MYERS SQUIBB COMPANY-12826996

PATIENT
  Age: 20 Year
  Sex: Male

DRUGS (3)
  1. BLENOXANE [Suspect]
  2. PLATINOL-AQ [Suspect]
  3. VEPESID [Suspect]

REACTIONS (1)
  - DEATH [None]
